FAERS Safety Report 6486960-6 (Version None)
Quarter: 2009Q4

REPORT INFORMATION
  Report Type: 
  Country: None (occurrence: None)
  Receive Date: 20091210
  Receipt Date: 20091130
  Transmission Date: 20100525
  Serious: Yes (Hospitalization)
  Sender: FDA-Public Use
  Company Number: PHHY2009FR52644

PATIENT
  Age: 53 Year
  Sex: Male

DRUGS (2)
  1. CYCLOSPORINE [Suspect]
     Indication: HEART TRANSPLANT
  2. EVEROLIMUS [Suspect]
     Indication: HEART TRANSPLANT
     Dosage: 1.5 MG/DAY

REACTIONS (4)
  - ACTINIC KERATOSIS [None]
  - BASAL CELL CARCINOMA [None]
  - SKIN CANCER [None]
  - SQUAMOUS CELL CARCINOMA OF SKIN [None]
